FAERS Safety Report 7543688-9 (Version None)
Quarter: 2011Q2

REPORT INFORMATION
  Report Type: 
  Country: None (occurrence: None)
  Receive Date: 20110613
  Receipt Date: 20030219
  Transmission Date: 20111010
  Serious: Yes (Death)
  Sender: FDA-Public Use
  Company Number: PHHO2003AR02485

PATIENT
  Sex: Female

DRUGS (2)
  1. CLONAZEPAM [Concomitant]
     Dosage: 1 MG, QD
  2. CLOZAPINE [Suspect]
     Indication: SCHIZOPHRENIA
     Dosage: 50 MG, QD
     Route: 048
     Dates: start: 19970114

REACTIONS (1)
  - CARDIO-RESPIRATORY ARREST [None]
